FAERS Safety Report 8401809-X (Version None)
Quarter: 2012Q2

REPORT INFORMATION
  Report Type: 
  Country: None (occurrence: None)
  Receive Date: 20120529
  Receipt Date: 19910710
  Transmission Date: 20120825
  Serious: Yes (Death, Hospitalization, Other)
  Sender: FDA-Public Use
  Company Number: 003887

PATIENT
  Age: 82 Year
  Sex: Female

DRUGS (6)
  1. CARBIDOPA AND LEVODOPA [Concomitant]
  2. RANITIDINE HYDROCHLORIDE [Concomitant]
  3. PLETAL [Suspect]
     Dosage: 100 MG, DAILY DOSE, ORAL
     Route: 048
     Dates: start: 19891116, end: 19910628
  4. TRIAZOLAM [Concomitant]
  5. BROMOCRIPTINE MESYLATE [Concomitant]
  6. ALPROSTADIL [Concomitant]

REACTIONS (9)
  - HEPATIC CONGESTION [None]
  - OEDEMA PERIPHERAL [None]
  - EYE HAEMORRHAGE [None]
  - CONDITION AGGRAVATED [None]
  - RESPIRATORY ARREST [None]
  - HAEMATOCRIT DECREASED [None]
  - EPISTAXIS [None]
  - CARDIAC FAILURE [None]
  - LIVER DISORDER [None]
